FAERS Safety Report 11352991 (Version 1)
Quarter: 2015Q3

REPORT INFORMATION
  Report Type: Spontaneous
  Country: US (occurrence: US)
  Receive Date: 20150807
  Receipt Date: 20150807
  Transmission Date: 20151125
  Serious: No
  Sender: FDA-Public Use
  Company Number: US-JNJFOC-20150705549

PATIENT
  Age: 30 Year
  Sex: Male
  Weight: 83.92 kg

DRUGS (3)
  1. OTHER NUTRIENTS [Concomitant]
     Indication: MUSCLE DISORDER
     Route: 065
  2. MENS ROGAINE EXTRA STRENGTH [Suspect]
     Active Substance: MINOXIDIL
     Route: 061
  3. MENS ROGAINE EXTRA STRENGTH [Suspect]
     Active Substance: MINOXIDIL
     Indication: ALOPECIA
     Dosage: 1/2 CAPFUL
     Route: 061

REACTIONS (6)
  - Inappropriate schedule of drug administration [Unknown]
  - Alopecia [Unknown]
  - Hair texture abnormal [Unknown]
  - Medication residue present [Unknown]
  - Drug ineffective [Unknown]
  - Underdose [Unknown]
